FAERS Safety Report 5007835-5 (Version None)
Quarter: 2006Q2

REPORT INFORMATION
  Report Type: 
  Country: None (occurrence: None)
  Receive Date: 20060522
  Receipt Date: 20060501
  Transmission Date: 20061013
  Serious: Yes (Other)
  Sender: FDA-Public Use
  Company Number: PHEH2006US05670

PATIENT
  Age: 17 Year
  Sex: Male

DRUGS (8)
  1. EXJADE [Suspect]
     Indication: BLOOD IRON INCREASED
     Dosage: 1000 MG, QD
     Route: 048
     Dates: start: 20060406, end: 20060414
  2. EXJADE [Suspect]
     Dosage: 500 MG, QD
     Route: 048
     Dates: start: 20060511
  3. NUTROPIN [Concomitant]
     Indication: OSTEOPOROSIS
     Dosage: 2.5 MG, QD
     Route: 058
  4. CALTRATE [Concomitant]
     Indication: OSTEOPOROSIS
     Dosage: 600 MG, QD
     Route: 048
  5. PENICILLIN [Concomitant]
     Indication: PROPHYLAXIS
     Dosage: 250 MG, BID
  6. FOLIC ACID [Concomitant]
     Dosage: 1 MG, QD
     Route: 048
  7. VITAMIN C AND E [Concomitant]
     Dosage: 250 MG, QD
     Route: 048
  8. PAMIDRONATE DISODIUM [Concomitant]
     Indication: OSTEOPOROSIS
     Dosage: 30 MG, UNK
     Dates: start: 20060417

REACTIONS (7)
  - ERYTHEMA [None]
  - PHARYNGEAL ERYTHEMA [None]
  - RASH GENERALISED [None]
  - RASH MACULAR [None]
  - SKIN HYPERPIGMENTATION [None]
  - THROAT LESION [None]
  - THROAT TIGHTNESS [None]
